FAERS Safety Report 17568747 (Version 2)
Quarter: 2020Q2

REPORT INFORMATION
  Report Type: Other
  Country: GB (occurrence: GB)
  Receive Date: 20200321
  Receipt Date: 20200515
  Transmission Date: 20200713
  Serious: Yes (Congenital Anomaly, Other)
  Sender: FDA-Public Use
  Company Number: GB-MACLEODS PHARMACEUTICALS US LTD-MAC2020025777

PATIENT

DRUGS (2)
  1. NEVIRAPINE 400 MG [Suspect]
     Active Substance: NEVIRAPINE
     Indication: PRODUCT USED FOR UNKNOWN INDICATION
     Dosage: 1 COURSE NEVIRAPINE 400 MG QD
     Route: 064
  2. TRUVADA [Suspect]
     Active Substance: EMTRICITABINE\TENOFOVIR DISOPROXIL FUMARATE
     Indication: PRODUCT USED FOR UNKNOWN INDICATION
     Dosage: UNK, 1 COURSE OF TRUVADA (EMTRICITABINE/TENOFOVIR) TAB/CAPS
     Route: 064

REACTIONS (3)
  - Developmental delay [Unknown]
  - Foetal exposure during pregnancy [Unknown]
  - Speech disorder [Unknown]
